FAERS Safety Report 16375371 (Version 2)
Quarter: 2019Q2

REPORT INFORMATION
  Report Type: Spontaneous
  Country: US (occurrence: US)
  Receive Date: 20190531
  Receipt Date: 20190611
  Transmission Date: 20190711
  Serious: No
  Sender: FDA-Public Use
  Company Number: US-HORIZON-RAV-0148-2019

PATIENT
  Age: 20 Month
  Sex: Female

DRUGS (3)
  1. RAVICTI [Suspect]
     Active Substance: GLYCEROL PHENYLBUTYRATE
     Indication: ORNITHINE TRANSCARBAMOYLASE DEFICIENCY
     Dosage: 0.7 ML THREE TIMES DAILY WITH MEALS
     Route: 048
     Dates: start: 20190518
  2. MIRALAX [Concomitant]
     Active Substance: POLYETHYLENE GLYCOL 3350
  3. CITRULLINE [Concomitant]
     Active Substance: CITRULLINE

REACTIONS (3)
  - Diarrhoea [Recovered/Resolved]
  - Erythema [Recovered/Resolved]
  - Skin odour abnormal [Unknown]

NARRATIVE: CASE EVENT DATE: 201905
